FAERS Safety Report 22302315 (Version 1)
Quarter: 2023Q2

REPORT INFORMATION
  Report Type: Spontaneous
  Country: US (occurrence: US)
  Receive Date: 20230510
  Receipt Date: 20230510
  Transmission Date: 20230721
  Serious: No
  Sender: FDA-Public Use
  Company Number: US-TAKEDA-2023TUS046142

PATIENT
  Sex: Female
  Weight: 93 kg

DRUGS (1)
  1. LIVTENCITY [Suspect]
     Active Substance: MARIBAVIR
     Indication: Cytomegalovirus colitis
     Dosage: 400 MILLIGRAM, BID
     Route: 065
     Dates: start: 20220916

REACTIONS (2)
  - Dysgeusia [Unknown]
  - Decreased appetite [Unknown]
